FAERS Safety Report 6627988-2 (Version None)
Quarter: 2010Q1

REPORT INFORMATION
  Report Type: 
  Country: None (occurrence: None)
  Receive Date: 20100311
  Receipt Date: 20090513
  Transmission Date: 20100710
  Serious: No
  Sender: FDA-Public Use
  Company Number: A0784046A

PATIENT
  Age: 39 Year
  Sex: Female

DRUGS (1)
  1. NICORETTE [Suspect]
     Dates: start: 20090511, end: 20090511

REACTIONS (7)
  - ASTHENIA [None]
  - DIZZINESS [None]
  - DRUG INEFFECTIVE [None]
  - FEELING HOT [None]
  - HYPERHIDROSIS [None]
  - NICOTINE DEPENDENCE [None]
  - SOMNOLENCE [None]
